FAERS Safety Report 21997645 (Version 2)
Quarter: 2023Q1

REPORT INFORMATION
  Report Type: Other
  Country: AU (occurrence: None)
  Receive Date: 20230216
  Receipt Date: 20230309
  Transmission Date: 20230418
  Serious: Yes (Disabling)
  Sender: FDA-Public Use
  Company Number: AU-ROCHE-3286347

PATIENT
  Age: 10 Year
  Sex: Male

DRUGS (1)
  1. HEMLIBRA [Suspect]
     Active Substance: EMICIZUMAB-KXWH
     Indication: Haemophilia
     Dosage: 0.7ML/FN?FREQUENCY FN
     Route: 058
     Dates: start: 202211

REACTIONS (4)
  - Viral infection [Recovering/Resolving]
  - Nasopharyngitis [Unknown]
  - Influenza like illness [Unknown]
  - Epistaxis [Unknown]

NARRATIVE: CASE EVENT DATE: 20230206
